FAERS Safety Report 4660258-0 (Version None)
Quarter: 2005Q2

REPORT INFORMATION
  Report Type: 
  Country: None (occurrence: None)
  Receive Date: 20050427
  Receipt Date: 20050209
  Transmission Date: 20051028
  Serious: No
  Sender: FDA-Public Use
  Company Number: 211574

PATIENT
  Age: 63 Year
  Sex: Female
  Weight: 51.7 kg

DRUGS (1)
  1. XOLAIR [Suspect]
     Indication: ASTHMA
     Dosage: 225 MG, Q2W
     Dates: start: 20040805, end: 20050126

REACTIONS (1)
  - HEAT RASH [None]
